FAERS Safety Report 12331965 (Version 1)
Quarter: 2016Q2

REPORT INFORMATION
  Report Type: Spontaneous
  Country: US (occurrence: US)
  Receive Date: 20160504
  Receipt Date: 20160504
  Transmission Date: 20160815
  Serious: No
  Sender: FDA-Public Use
  Company Number: US-PFIZER INC-2016122838

PATIENT
  Age: 73 Year
  Sex: Male

DRUGS (8)
  1. ATROVENT HFA [Concomitant]
     Active Substance: IPRATROPIUM BROMIDE
     Dosage: 2 DF, 4X/DAY (17 MCG/ACT, INHALE 2 PUFFS INTO THE LUNGS)
     Route: 055
  2. ASPIRIN /00002701/ [Concomitant]
     Active Substance: ASPIRIN
     Dosage: 81 MG, DAILY
     Route: 048
  3. VFEND [Suspect]
     Active Substance: VORICONAZOLE
     Dosage: 1 TAB PO Q12
  4. FLOVENT HFA [Concomitant]
     Active Substance: FLUTICASONE PROPIONATE
     Dosage: 1 DF, 2X/DAY (220 MCG/ACT, INHALE 1 PUFF INTO THE LUNGS)
     Route: 055
  5. ALBUTEROL /00139501/ [Concomitant]
     Active Substance: ALBUTEROL
     Dosage: 2 DF, AS NEEDED [108 (90 BASE)MCG/ACT INHALE 2 PUFFS INTO THE LUNGS EVERY 4 HOURS]
     Route: 055
  6. VFEND [Suspect]
     Active Substance: VORICONAZOLE
     Dosage: 2 TABS PO 2 TABS PO Q12H X2 DOSES
     Route: 048
  7. PROAIR HFA [Concomitant]
     Active Substance: ALBUTEROL SULFATE
     Dosage: 2 DF, AS NEEDED [108 (90 BASE)MCG/ACT INHALE 2 PUFFS INTO THE LUNGS EVERY 4 HOURS]
     Route: 055
  8. PRILOSEC [Concomitant]
     Active Substance: OMEPRAZOLE MAGNESIUM
     Dosage: 20 MG, 1X/DAY [EVERY MORNING (BEFORE BREAKFAST)]
     Route: 048

REACTIONS (1)
  - Initial insomnia [Unknown]
